FAERS Safety Report 19873365 (Version 2)
Quarter: 2021Q4

REPORT INFORMATION
  Report Type: Spontaneous
  Country: CA (occurrence: CA)
  Receive Date: 20210923
  Receipt Date: 20211122
  Transmission Date: 20220303
  Serious: No
  Sender: FDA-Public Use
  Company Number: CA-PFIZER INC-202101189407

PATIENT
  Age: 60 Year
  Sex: Female

DRUGS (3)
  1. ESTRING [Suspect]
     Active Substance: ESTRADIOL
     Indication: Blood oestrogen decreased
     Dosage: UNK
  2. ESTRING [Suspect]
     Active Substance: ESTRADIOL
     Indication: Vulvovaginal pain
  3. ESTRING [Suspect]
     Active Substance: ESTRADIOL
     Indication: Sexual dysfunction

REACTIONS (3)
  - Device issue [Unknown]
  - Device difficult to use [Unknown]
  - Incorrect product administration duration [Unknown]
